FAERS Safety Report 18333465 (Version 3)
Quarter: 2020Q4

REPORT INFORMATION
  Report Type: Spontaneous
  Country: US (occurrence: US)
  Receive Date: 20201001
  Receipt Date: 20201204
  Transmission Date: 20210113
  Serious: No
  Sender: FDA-Public Use
  Company Number: US-GILEAD-2020-0494710

PATIENT
  Sex: Male

DRUGS (13)
  1. LISINOPRIL. [Concomitant]
     Active Substance: LISINOPRIL
  2. VRAYLAR [Concomitant]
     Active Substance: CARIPRAZINE
  3. CYCLOBENZAPRINE HYDROCHLORIDE. [Concomitant]
     Active Substance: CYCLOBENZAPRINE HYDROCHLORIDE
  4. ESCITALOPRAM OXALATE. [Concomitant]
     Active Substance: ESCITALOPRAM OXALATE
  5. NAPROXEN. [Concomitant]
     Active Substance: NAPROXEN
  6. TOPAMAX [Concomitant]
     Active Substance: TOPIRAMATE
  7. IBUPROFEN. [Concomitant]
     Active Substance: IBUPROFEN
  8. LAMOTRIGINE. [Concomitant]
     Active Substance: LAMOTRIGINE
  9. EPCLUSA [Suspect]
     Active Substance: SOFOSBUVIR\VELPATASVIR
     Indication: CHRONIC HEPATITIS C
     Dosage: 1 DOSAGE FORM, QD
     Route: 048
     Dates: start: 20200825
  10. GEODON [Concomitant]
     Active Substance: ZIPRASIDONE HYDROCHLORIDE\ZIPRASIDONE MESYLATE
  11. RISPERDAL [Concomitant]
     Active Substance: RISPERIDONE
  12. ZYPREXA [Concomitant]
     Active Substance: OLANZAPINE
  13. GEMFIBROZIL. [Concomitant]
     Active Substance: GEMFIBROZIL

REACTIONS (4)
  - Eating disorder [Unknown]
  - Fatigue [Unknown]
  - Skin papilloma [Not Recovered/Not Resolved]
  - Skin ulcer [Not Recovered/Not Resolved]
